FAERS Safety Report 22371223 (Version 1)
Quarter: 2023Q2

REPORT INFORMATION
  Report Type: Spontaneous
  Country: RU (occurrence: None)
  Receive Date: 20230526
  Receipt Date: 20230526
  Transmission Date: 20230722
  Serious: Yes (Death)
  Sender: FDA-Public Use
  Company Number: RU-ROCHE-3355296

PATIENT
  Sex: Male

DRUGS (1)
  1. TECENTRIQ [Suspect]
     Active Substance: ATEZOLIZUMAB
     Indication: Product used for unknown indication
     Route: 065

REACTIONS (5)
  - Chronic obstructive pulmonary disease [Fatal]
  - Cystic lung disease [Fatal]
  - Pulmonary hypertension [Fatal]
  - COVID-19 [Fatal]
  - Therapeutic product effect incomplete [Unknown]
